FAERS Safety Report 9030169 (Version 1)
Quarter: 2013Q1

REPORT INFORMATION
  Report Type: Spontaneous
  Country: US (occurrence: US)
  Receive Date: 20130125
  Receipt Date: 20130125
  Transmission Date: 20140127
  Serious: Yes (Other)
  Sender: FDA-Public Use
  Company Number: US-PFIZER INC-2013030262

PATIENT
  Age: 81 Year
  Sex: Male

DRUGS (1)
  1. AMIODARONE HCL [Suspect]
     Dosage: UNK

REACTIONS (2)
  - Pulmonary fibrosis [Unknown]
  - Drug hypersensitivity [Unknown]
